FAERS Safety Report 4284543-X (Version None)
Quarter: 2004Q1

REPORT INFORMATION
  Report Type: 
  Country: None (occurrence: None)
  Receive Date: 20040130
  Receipt Date: 20040109
  Transmission Date: 20041129
  Serious: Yes (Hospitalization)
  Sender: FDA-Public Use
  Company Number: USA031048790

PATIENT
  Age: 82 Year
  Sex: Female
  Weight: 48 kg

DRUGS (12)
  1. FORTEO [Suspect]
     Indication: OSTEOPOROSIS
     Dosage: 20 MCG/DAY
     Dates: start: 20030808
  2. DARVOCET-N 100 [Concomitant]
  3. COUMADIN [Concomitant]
  4. VITAMIN A [Concomitant]
  5. VITAMIN B [Concomitant]
  6. VITAMIN C [Concomitant]
  7. VITAMIN D [Concomitant]
  8. SPIRONOLACTONE [Concomitant]
  9. MONOPRIL [Concomitant]
  10. GLUCOSAMINE CHONDROITIN [Concomitant]
  11. TYLENOL [Concomitant]
  12. IBUPROFEN [Concomitant]

REACTIONS (7)
  - ABDOMINAL PAIN [None]
  - ERYTHEMA [None]
  - HAEMORRHAGE [None]
  - INFECTION [None]
  - PHARMACEUTICAL PRODUCT COMPLAINT [None]
  - PRURITUS [None]
  - SCRATCH [None]
